FAERS Safety Report 25219742 (Version 1)
Quarter: 2025Q2

REPORT INFORMATION
  Report Type: Spontaneous
  Country: US (occurrence: None)
  Receive Date: 20250418
  Receipt Date: 20250418
  Transmission Date: 20250717
  Serious: Yes (Other)
  Sender: FDA-CTU
  Company Number: None

PATIENT
  Age: 45 Year
  Sex: Female
  Weight: 60 kg

DRUGS (1)
  1. PERMETHRIN [Suspect]
     Active Substance: PERMETHRIN
     Indication: Scabies
     Route: 061
     Dates: start: 20250418, end: 20250418

REACTIONS (2)
  - Pruritus [None]
  - Tremor [None]

NARRATIVE: CASE EVENT DATE: 20250418
